FAERS Safety Report 18360965 (Version 1)
Quarter: 2020Q4

REPORT INFORMATION
  Report Type: Report from Study
  Country: GB (occurrence: GB)
  Receive Date: 20201008
  Receipt Date: 20201008
  Transmission Date: 20210114
  Serious: Yes (Hospitalization)
  Sender: FDA-Public Use
  Company Number: GB-MYLANLABS-2020M1084432

PATIENT
  Sex: Male

DRUGS (3)
  1. ADALIMUMAB [Suspect]
     Active Substance: ADALIMUMAB
     Indication: PRODUCT USED FOR UNKNOWN INDICATION
     Dosage: UNK
     Route: 065
  2. HUMIRA [Suspect]
     Active Substance: ADALIMUMAB
     Indication: PSORIATIC ARTHROPATHY
     Dosage: 40 MILLIGRAM, BIWEEKLY
     Route: 058
  3. HUMIRA [Suspect]
     Active Substance: ADALIMUMAB
     Dosage: 40 MILLIGRAM, BIWEEKLY
     Route: 058

REACTIONS (19)
  - Musculoskeletal stiffness [Unknown]
  - Pain [Unknown]
  - Adverse food reaction [Not Recovered/Not Resolved]
  - Impaired driving ability [Unknown]
  - Pain in extremity [Unknown]
  - Psoriasis [Recovering/Resolving]
  - Cellulitis [Recovering/Resolving]
  - Mood altered [Unknown]
  - Neck pain [Unknown]
  - Joint stiffness [Not Recovered/Not Resolved]
  - Weight increased [Unknown]
  - Irritability [Unknown]
  - Hypovitaminosis [Unknown]
  - Drug ineffective [Unknown]
  - Fatigue [Unknown]
  - Arthralgia [Not Recovered/Not Resolved]
  - Anxiety [Unknown]
  - Insomnia [Unknown]
  - Mobility decreased [Not Recovered/Not Resolved]
